FAERS Safety Report 18690488 (Version 1)
Quarter: 2020Q4

REPORT INFORMATION
  Report Type: Spontaneous
  Country: CN (occurrence: CN)
  Receive Date: 20201231
  Receipt Date: 20201231
  Transmission Date: 20210114
  Serious: Yes (Other)
  Sender: FDA-Public Use
  Company Number: CN-BAXTER-2020BAX026629

PATIENT
  Age: 48 Year
  Sex: Female

DRUGS (8)
  1. DOXORUBICIN HYDROCHLORIDE LIPOSOMAL [Suspect]
     Active Substance: DOXORUBICIN HYDROCHLORIDE
     Dosage: 3RD CHEMOTHERAPY; DOXORUBICIN HYDROCHLORIDE LIPOSOMAL 60 MG + GLUCOSE 250 ML
     Route: 041
     Dates: start: 20201116, end: 20201117
  2. ENDOXAN [Suspect]
     Active Substance: CYCLOPHOSPHAMIDE
     Indication: BREAST CANCER FEMALE
     Dosage: 1-2ND CHEMOTHERAPY; CYCLOPHOSPHAMIDE + SODIUM CHLORIDE
     Route: 041
  3. DOXORUBICIN HYDROCHLORIDE LIPOSOMAL [Suspect]
     Active Substance: DOXORUBICIN HYDROCHLORIDE
     Indication: BREAST CANCER FEMALE
     Dosage: 1-2ND CHEMOTHERAPY; DOXORUBICIN HYDROCHLORIDE LIPOSOMAL + GLUCOSE
     Route: 041
  4. SODIUM CHLORIDE. [Suspect]
     Active Substance: SODIUM CHLORIDE
     Indication: MEDICATION DILUTION
     Dosage: 1-2ND CHEMOTHERAPY;  SODIUM CHLORIDE +CYCLOPHOSPHAMIDE
     Route: 041
  5. SODIUM CHLORIDE. [Suspect]
     Active Substance: SODIUM CHLORIDE
     Dosage: 3RD CHEMOTHERAPY;  SODIUM CHLORIDE 100 ML + CYCLOPHOSPHAMIDE 1 G
     Route: 041
     Dates: start: 20201116, end: 20201117
  6. GLUCOSE [Suspect]
     Active Substance: DEXTROSE
     Dosage: 3RD CHEMOTHERAPY;  GLUCOSE 250 ML + DOXORUBICIN HYDROCHLORIDE LIPOSOMAL 60 MG
     Route: 041
     Dates: start: 20201116, end: 20201117
  7. ENDOXAN [Suspect]
     Active Substance: CYCLOPHOSPHAMIDE
     Dosage: 3 RD CHEMOTHERAPY; CYCLOPHOSPHAMIDE 1 G + SODIUM CHLORIDE 100 ML
     Route: 041
     Dates: start: 20201116, end: 20201117
  8. GLUCOSE [Suspect]
     Active Substance: DEXTROSE
     Indication: MEDICATION DILUTION
     Dosage: 1-2ND CHEMOTHERAPY;  GLUCOSE + DOXORUBICIN HYDROCHLORIDE LIPOSOMAL
     Route: 041

REACTIONS (7)
  - Dysphagia [Recovering/Resolving]
  - Gastrooesophageal reflux disease [Unknown]
  - Nausea [Recovering/Resolving]
  - Vomiting [Recovered/Resolved]
  - Vomiting [Recovered/Resolved]
  - Haematemesis [Recovering/Resolving]
  - Nausea [Recovered/Resolved]

NARRATIVE: CASE EVENT DATE: 20201117
